FAERS Safety Report 8906153 (Version 2)
Quarter: 2012Q4

REPORT INFORMATION
  Report Type: Spontaneous
  Country: DE (occurrence: None)
  Receive Date: 20121023
  Receipt Date: 20121107
  Transmission Date: 20130627
  Serious: Yes (Death)
  Sender: FDA-Public Use
  Company Number: 2012033697

PATIENT
  Age: 65 Year
  Sex: Female

DRUGS (2)
  1. PRIVIGEN (IMMUNE GLOBULIN INTRAVENOUS (HUMAN) 10% LIQUID) [Suspect]
     Indication: CHRONIC LYMPHATIC LEUKEMIA
     Dosage: 06-apr-2011 13:45 to 06-Apr-2011 15:30
     Route: 042
     Dates: start: 20110406, end: 20110406
  2. PRIVIGEN (IMMUNE GLOBULIN INTRAVENOUS (HUMAN) 10% LIQUID) [Suspect]
     Indication: CHRONIC LYMPHATIC LEUKEMIA
     Dosage: 04-May-2011 14:00 to 04-May-2011 16:00
     Route: 042
     Dates: start: 20110504, end: 20110504

REACTIONS (1)
  - Acute myeloid leukaemia [None]
